FAERS Safety Report 21516531 (Version 3)
Quarter: 2025Q4

REPORT INFORMATION
  Report Type: Other
  Country: EU (occurrence: EU)
  Receive Date: 20221027
  Receipt Date: 20251119
  Transmission Date: 20260118
  Serious: Yes (Hospitalization, Other)
  Sender: INCYTE
  Company Number: None

PATIENT
  Age: 15 Year
  Weight: 65 kg

DRUGS (12)
  1. RUXOLITINIB [Suspect]
     Active Substance: RUXOLITINIB
     Indication: Autoinflammatory disease
     Dosage: 40 MG, QD
  2. METHOTREXATE [Suspect]
     Active Substance: METHOTREXATE
     Indication: Autoinflammatory disease
     Dosage: 10 MG, QW
  3. PREDNISONE [Suspect]
     Active Substance: PREDNISONE
     Indication: Autoinflammatory disease
     Dosage: 7.500MG QD
  4. PREDNISONE [Suspect]
     Active Substance: PREDNISONE
     Dosage: 20.000MG QD
  5. TRIAMCINOLONE HEXACETONIDE [Suspect]
     Active Substance: TRIAMCINOLONE HEXACETONIDE
     Indication: Autoinflammatory disease
     Dosage: UNK
  6. FOLIC ACID [Concomitant]
     Active Substance: FOLIC ACID
     Indication: Drug toxicity prophylaxis
     Dosage: 5 MG, QW
  7. FOLIC ACID [Concomitant]
     Active Substance: FOLIC ACID
     Dosage: 5 MG
  8. CALCIUM CARBONATE\CHOLECALCIFEROL [Concomitant]
     Active Substance: CALCIUM CARBONATE\CHOLECALCIFEROL
     Indication: Osteoporosis
     Dosage: 2 DOSAGE FORM, QD (2 DF)
  9. RAMIPRIL [Concomitant]
     Active Substance: RAMIPRIL
     Indication: Myopericarditis
     Dosage: 10 MG, QD
  10. RAMIPRIL [Concomitant]
     Active Substance: RAMIPRIL
     Dosage: 10 MG, QD
  11. BISOPROLOL FUMARATE [Concomitant]
     Active Substance: BISOPROLOL FUMARATE
     Indication: Myopericarditis
     Dosage: 7.5 MG, QD
  12. BISOPROLOL FUMARATE [Concomitant]
     Active Substance: BISOPROLOL FUMARATE
     Dosage: 7.500MG QD

REACTIONS (1)
  - Perineal abscess [Recovered/Resolved]
